FAERS Safety Report 20665958 (Version 2)
Quarter: 2022Q2

REPORT INFORMATION
  Report Type: Spontaneous
  Country: US (occurrence: US)
  Receive Date: 20220403
  Receipt Date: 20220408
  Transmission Date: 20220720
  Serious: Yes (Hospitalization)
  Sender: FDA-Public Use
  Company Number: US-AUROBINDO-AUR-APL-2022-010323

PATIENT
  Age: 39 Year
  Sex: Female

DRUGS (28)
  1. LORAZEPAM [Suspect]
     Active Substance: LORAZEPAM
     Indication: Insomnia
     Dosage: UNK
     Route: 065
  2. SILDENAFIL [Suspect]
     Active Substance: SILDENAFIL
     Indication: Pulmonary arterial hypertension
     Dosage: 40 MILLIGRAM, 3 TIMES A DAY
     Route: 065
  3. MACITENTAN [Suspect]
     Active Substance: MACITENTAN
     Indication: Pulmonary arterial hypertension
     Dosage: 10 MILLIGRAM, ONCE A DAY
     Route: 065
  4. EPOPROSTENOL [Suspect]
     Active Substance: EPOPROSTENOL
     Indication: Pulmonary arterial hypertension
     Dosage: 19 NG/KG/MIN, DOSAGE WAS DECREASED BY 2 NG/KG/MIN
     Route: 042
  5. EPOPROSTENOL [Suspect]
     Active Substance: EPOPROSTENOL
     Dosage: UNK
     Route: 051
  6. EPOPROSTENOL [Suspect]
     Active Substance: EPOPROSTENOL
     Dosage: 17NG/KG/MIN
     Route: 042
  7. EPOPROSTENOL [Suspect]
     Active Substance: EPOPROSTENOL
     Dosage: 15 NG/KG/MIN
     Route: 042
  8. EPOPROSTENOL [Suspect]
     Active Substance: EPOPROSTENOL
     Dosage: 13 NG/KG/MIN
     Route: 042
  9. EPOPROSTENOL [Suspect]
     Active Substance: EPOPROSTENOL
     Dosage: 11 NG/KG/MIN
     Route: 042
  10. EPOPROSTENOL [Suspect]
     Active Substance: EPOPROSTENOL
     Dosage: 9 NG/KG/MIN
     Route: 042
  11. EPOPROSTENOL [Suspect]
     Active Substance: EPOPROSTENOL
     Dosage: 7 NG/KG/MIN
     Route: 042
  12. EPOPROSTENOL [Suspect]
     Active Substance: EPOPROSTENOL
     Dosage: 5 NG/KG/MIN
     Route: 042
  13. EPOPROSTENOL [Suspect]
     Active Substance: EPOPROSTENOL
     Dosage: 3 NG/KG/MIN
     Route: 042
  14. EPOPROSTENOL [Suspect]
     Active Substance: EPOPROSTENOL
     Dosage: 1 NG/KG/MIN
     Route: 042
  15. EPOPROSTENOL [Suspect]
     Active Substance: EPOPROSTENOL
     Dosage: 0 NG/KG/MIN
     Route: 042
  16. OXYCODONE [Concomitant]
     Active Substance: OXYCODONE
     Indication: Product used for unknown indication
     Dosage: 10 MILLIGRAM, 3 TIMES A DAY
     Route: 065
  17. WARFARIN [Concomitant]
     Active Substance: WARFARIN
     Indication: Product used for unknown indication
     Dosage: UNK
     Route: 065
  18. TREPROSTINIL [Concomitant]
     Active Substance: TREPROSTINIL
     Indication: Pulmonary arterial hypertension
     Dosage: 5 MILLIGRAM, 3 TIMES A DAY (5 MG 32 TIMES DAILY)
     Route: 048
  19. TREPROSTINIL [Concomitant]
     Active Substance: TREPROSTINIL
     Dosage: 0.5 MILLIGRAM
     Route: 048
  20. TREPROSTINIL [Concomitant]
     Active Substance: TREPROSTINIL
     Dosage: 1 MILLIGRAM
     Route: 048
  21. TREPROSTINIL [Concomitant]
     Active Substance: TREPROSTINIL
     Dosage: 1.5 MILLIGRAM
     Route: 048
  22. TREPROSTINIL [Concomitant]
     Active Substance: TREPROSTINIL
     Dosage: 2 MILLIGRAM
     Route: 048
  23. TREPROSTINIL [Concomitant]
     Active Substance: TREPROSTINIL
     Dosage: 2.5 MILLIGRAM
     Route: 048
  24. TREPROSTINIL [Concomitant]
     Active Substance: TREPROSTINIL
     Dosage: 3 MILLIGRAM
     Route: 048
  25. TREPROSTINIL [Concomitant]
     Active Substance: TREPROSTINIL
     Dosage: 3.5 MILLIGRAM
     Route: 048
  26. TREPROSTINIL [Concomitant]
     Active Substance: TREPROSTINIL
     Dosage: 4 MILLIGRAM
     Route: 048
  27. TREPROSTINIL [Concomitant]
     Active Substance: TREPROSTINIL
     Dosage: 4.5 MILLIGRAM
     Route: 048
  28. TREPROSTINIL [Concomitant]
     Active Substance: TREPROSTINIL
     Dosage: 5 MILLIGRAM
     Route: 048

REACTIONS (3)
  - Mental status changes [Unknown]
  - Overdose [Unknown]
  - Drug ineffective [Unknown]
